FAERS Safety Report 11211148 (Version 1)
Quarter: 2015Q2

REPORT INFORMATION
  Report Type: Report from Study
  Country: DE (occurrence: DE)
  Receive Date: 20150623
  Receipt Date: 20150623
  Transmission Date: 20150821
  Serious: Yes (Hospitalization)
  Sender: FDA-Public Use
  Company Number: DE-ROCHE-1595495

PATIENT
  Age: 63 Year
  Sex: Female
  Weight: 78 kg

DRUGS (10)
  1. RITUXIMAB [Suspect]
     Active Substance: RITUXIMAB
     Indication: DIFFUSE LARGE B-CELL LYMPHOMA
     Route: 042
     Dates: start: 20150309
  2. CYTARABINE. [Suspect]
     Active Substance: CYTARABINE
     Indication: DIFFUSE LARGE B-CELL LYMPHOMA
     Route: 065
     Dates: start: 20150313, end: 20150313
  3. PANTOZOL (PANTOPRAZOL) [Concomitant]
     Dosage: DAILY
     Route: 065
     Dates: start: 20150309
  4. CEFUROXIM [Concomitant]
     Active Substance: CEFUROXIME
     Route: 065
     Dates: start: 20150318
  5. LORAZEPAM. [Concomitant]
     Active Substance: LORAZEPAM
     Dosage: DAILY
     Route: 065
  6. DEXAMETHASONE. [Suspect]
     Active Substance: DEXAMETHASONE
     Indication: DIFFUSE LARGE B-CELL LYMPHOMA
     Route: 065
     Dates: start: 20150312, end: 20150315
  7. AGOMELATINE [Concomitant]
     Active Substance: AGOMELATINE
     Dosage: DAILY
     Route: 065
     Dates: start: 20150312
  8. CARBOPLATIN. [Concomitant]
     Active Substance: CARBOPLATIN
     Dosage: 2ND CYCLE
     Route: 065
     Dates: start: 20150403
  9. TEMSIROLIMUS [Suspect]
     Active Substance: TEMSIROLIMUS
     Indication: DIFFUSE LARGE B-CELL LYMPHOMA
     Dosage: CYCLIC, DAY 1 AND DAY 8 OF EACH CYCLE
     Route: 065
     Dates: start: 20150309
  10. CISPLATIN. [Suspect]
     Active Substance: CISPLATIN
     Indication: DIFFUSE LARGE B-CELL LYMPHOMA
     Route: 065
     Dates: start: 20150312, end: 20150312

REACTIONS (2)
  - Febrile bone marrow aplasia [Recovered/Resolved]
  - Mucosal inflammation [Recovered/Resolved]

NARRATIVE: CASE EVENT DATE: 20150326
